FAERS Safety Report 4390928-3 (Version None)
Quarter: 2004Q3

REPORT INFORMATION
  Report Type: 
  Country: None (occurrence: None)
  Receive Date: 20040702
  Receipt Date: 20040702
  Transmission Date: 20050211
  Serious: No
  Sender: FDA-Public Use
  Company Number: None

PATIENT

DRUGS (1)
  1. AQUAMEPHYTON [Suspect]

REACTIONS (2)
  - CHEST PAIN [None]
  - DYSPNOEA [None]
